FAERS Safety Report 9159937 (Version 3)
Quarter: 2013Q3

REPORT INFORMATION
  Report Type: Spontaneous
  Country: US (occurrence: US)
  Receive Date: 20130313
  Receipt Date: 20130719
  Transmission Date: 20140515
  Serious: No
  Sender: FDA-Public Use
  Company Number: US-B.I. PHARMACEUTICALS,INC./RIDGEFIELD-2013-BI-06186BP

PATIENT
  Age: 87 Year
  Sex: Male

DRUGS (8)
  1. TRADJENTA [Suspect]
     Indication: TYPE 2 DIABETES MELLITUS
     Dosage: 5 MG
     Route: 048
     Dates: start: 20130202, end: 20130216
  2. TRADJENTA [Suspect]
     Dosage: 5 MG
     Route: 048
     Dates: start: 20130217, end: 20130224
  3. TRADJENTA [Suspect]
     Dosage: 5 MG
     Route: 048
     Dates: end: 20130228
  4. HYDROCHLOROTHIAZIDE [Concomitant]
     Indication: HYPERTENSION
     Dosage: 12.5 MG
     Dates: end: 20130224
  5. LISINOPRIL [Concomitant]
     Indication: HYPERTENSION
     Dosage: 10 MG
     Dates: start: 20130128
  6. ALLOPURINOL [Concomitant]
     Indication: GOUT
     Dosage: 100 MG
     Dates: start: 20130128
  7. LISINOPRIL HCTZ [Concomitant]
     Indication: HYPERTENSION
     Dosage: 10 MG
     Dates: start: 20100225, end: 20130228
  8. PRAVASTATIN [Concomitant]
     Indication: HYPERLIPIDAEMIA
     Dosage: 40 MG
     Dates: start: 20130228

REACTIONS (1)
  - Gout [Recovered/Resolved]
